FAERS Safety Report 6445185-0 (Version None)
Quarter: 2009Q4

REPORT INFORMATION
  Report Type: 
  Country: None (occurrence: None)
  Receive Date: 20091118
  Receipt Date: 20090514
  Transmission Date: 20100525
  Serious: No
  Sender: FDA-Public Use
  Company Number: US-BRISTOL-MYERS SQUIBB COMPANY-12137485

PATIENT
  Age: 76 Year
  Sex: Male
  Weight: 73 kg

DRUGS (4)
  1. GLUCOPHAGE XR [Suspect]
     Indication: DIABETES MELLITUS
     Route: 048
  2. BABY ASPIRIN [Concomitant]
  3. RAMIPRIL [Concomitant]
  4. JANUVIA [Concomitant]

REACTIONS (3)
  - BACK PAIN [None]
  - DYSKINESIA [None]
  - MUSCLE SPASMS [None]
